FAERS Safety Report 6750242-5 (Version None)
Quarter: 2010Q2

REPORT INFORMATION
  Report Type: 
  Country: None (occurrence: None)
  Receive Date: 20100601
  Receipt Date: 20100521
  Transmission Date: 20101027
  Serious: Yes (Death, Hospitalization)
  Sender: FDA-Public Use
  Company Number: US-KINGPHARMUSA00001-K200800141

PATIENT
  Age: 69 Year
  Sex: Male

DRUGS (4)
  1. ALTACE [Suspect]
     Dosage: 5 MG, QD
     Route: 048
  2. DOCETAXEL [Suspect]
     Indication: LARYNGEAL CANCER
     Dosage: 75 MG/M2, CYCLICAL
     Route: 042
     Dates: start: 20071130, end: 20071204
  3. FLUOROURACIL [Suspect]
     Indication: LARYNGEAL CANCER
     Dosage: 750 MG/M2, CYCLICAL
     Dates: start: 20071130, end: 20071204
  4. CISPLATIN [Suspect]
     Indication: LARYNGEAL CANCER
     Dosage: 75 MG/M2, CYCLICAL
     Dates: start: 20071130, end: 20071130

REACTIONS (5)
  - CIRCULATORY COLLAPSE [None]
  - CLOSTRIDIAL INFECTION [None]
  - LARYNGEAL INFLAMMATION [None]
  - LEUKOPENIA [None]
  - PAIN IN EXTREMITY [None]
